FAERS Safety Report 10740472 (Version 4)
Quarter: 2015Q1

REPORT INFORMATION
  Report Type: Report from Study
  Country: DE (occurrence: DE)
  Receive Date: 20150127
  Receipt Date: 20150323
  Transmission Date: 20150721
  Serious: Yes (Hospitalization)
  Sender: FDA-Public Use
  Company Number: DE-JNJFOC-20150107217

PATIENT
  Age: 74 Year
  Sex: Male
  Weight: 76 kg

DRUGS (16)
  1. CALCIGEN D [Concomitant]
     Active Substance: CALCIUM CARBONATE\CHOLECALCIFEROL
     Indication: PROSTATE CANCER
     Route: 065
     Dates: start: 20140827
  2. ABIRATERONE ACETATE [Suspect]
     Active Substance: ABIRATERONE ACETATE
     Indication: PROSTATE CANCER METASTATIC
     Route: 048
     Dates: start: 20141101
  3. ABIRATERONE ACETATE [Suspect]
     Active Substance: ABIRATERONE ACETATE
     Indication: PROSTATE CANCER METASTATIC
     Route: 048
     Dates: start: 20140930, end: 20141014
  4. PALEXIA [Suspect]
     Active Substance: TAPENTADOL HYDROCHLORIDE
     Indication: PROSTATE CANCER
     Route: 065
     Dates: start: 20120823, end: 20141211
  5. TAMSULOSIN [Concomitant]
     Active Substance: TAMSULOSIN
     Indication: BENIGN PROSTATIC HYPERPLASIA
     Route: 065
     Dates: start: 20120726, end: 20120802
  6. ANDROCUR DEPOT [Concomitant]
     Indication: PROSTATE CANCER
     Route: 065
     Dates: start: 20121121
  7. FENTANYL. [Suspect]
     Active Substance: FENTANYL
     Indication: PROSTATE CANCER
     Route: 065
     Dates: start: 20120905
  8. XGEVA [Concomitant]
     Active Substance: DENOSUMAB
     Indication: PROSTATE CANCER
     Route: 065
     Dates: start: 20140730
  9. PALLADON [Concomitant]
     Active Substance: HYDROMORPHONE
     Indication: PROSTATE CANCER
     Route: 065
     Dates: start: 20141111
  10. PALEXIA [Suspect]
     Active Substance: TAPENTADOL HYDROCHLORIDE
     Indication: PAIN MANAGEMENT
     Route: 065
     Dates: start: 20120823, end: 20141211
  11. ESTRAMON [Concomitant]
     Active Substance: ESTRADIOL
     Indication: PROSTATE CANCER
     Route: 065
     Dates: start: 20141118
  12. PREDNISONE. [Suspect]
     Active Substance: PREDNISONE
     Indication: PROSTATE CANCER METASTATIC
     Route: 048
     Dates: start: 20140930, end: 20141015
  13. LEUPROLIDE ACETATE. [Concomitant]
     Active Substance: LEUPROLIDE ACETATE
     Indication: PROSTATE CANCER
     Route: 065
     Dates: start: 20130117
  14. ZOPLICONE [Concomitant]
     Active Substance: ZOPICLONE
     Route: 065
     Dates: start: 20131020, end: 20140605
  15. ABIRATERONE ACETATE [Suspect]
     Active Substance: ABIRATERONE ACETATE
     Indication: PROSTATE CANCER METASTATIC
     Route: 048
     Dates: start: 20141015, end: 20141030
  16. PREDNISONE. [Suspect]
     Active Substance: PREDNISONE
     Indication: PROSTATE CANCER METASTATIC
     Route: 048
     Dates: start: 20141015, end: 20141030

REACTIONS (10)
  - Oedema peripheral [Unknown]
  - Hypertension [Unknown]
  - Goitre [Unknown]
  - Hyperhidrosis [Unknown]
  - Pain [Unknown]
  - Drug intolerance [Recovered/Resolved]
  - Constipation [Unknown]
  - Weight increased [Unknown]
  - General physical health deterioration [Unknown]
  - Fatigue [Unknown]

NARRATIVE: CASE EVENT DATE: 20141209
